FAERS Safety Report 13839394 (Version 1)
Quarter: 2017Q3

REPORT INFORMATION
  Report Type: Spontaneous
  Country: US (occurrence: US)
  Receive Date: 20170805
  Receipt Date: 20170805
  Transmission Date: 20171127
  Serious: No
  Sender: FDA-Public Use
  Company Number: None

PATIENT
  Age: 49 Year
  Sex: Male

DRUGS (10)
  1. AMLODIPINE [Concomitant]
     Active Substance: AMLODIPINE BESYLATE
  2. LANSOPRAZOLE. [Concomitant]
     Active Substance: LANSOPRAZOLE
  3. OXYCODONE [Concomitant]
     Active Substance: OXYCODONE
  4. CLONAZEPAM. [Concomitant]
     Active Substance: CLONAZEPAM
  5. AMPHOTERICIN B. [Suspect]
     Active Substance: AMPHOTERICIN B
     Indication: PNEUMONIA
     Route: 042
     Dates: start: 20170502, end: 20170509
  6. ACYCLOVIR. [Concomitant]
     Active Substance: ACYCLOVIR
  7. GABAPENTIN. [Concomitant]
     Active Substance: GABAPENTIN
  8. MAGNESIUM SULFATE. [Concomitant]
     Active Substance: MAGNESIUM SULFATE
  9. ONDANSETRON [Concomitant]
     Active Substance: ONDANSETRON
  10. MORPHINE [Concomitant]
     Active Substance: MORPHINE

REACTIONS (6)
  - Hypokalaemia [None]
  - Acute kidney injury [None]
  - Pulmonary mass [None]
  - Drug interaction [None]
  - Pneumonia fungal [None]
  - Mucormycosis [None]

NARRATIVE: CASE EVENT DATE: 20170509
